FAERS Safety Report 8475350-2 (Version None)
Quarter: 2012Q2

REPORT INFORMATION
  Report Type: 
  Country: None (occurrence: None)
  Receive Date: 20120628
  Receipt Date: 20120618
  Transmission Date: 20120825
  Serious: Yes (Death)
  Sender: FDA-Public Use
  Company Number: FR-ROCHE-1079203

PATIENT
  Age: 91 Year
  Sex: Female

DRUGS (8)
  1. ACETAMINOPHEN [Concomitant]
     Route: 048
     Dates: start: 20120410
  2. ZOLOFT [Suspect]
     Indication: DEPRESSION
     Dates: start: 20120410, end: 20120511
  3. IMOVANE [Suspect]
     Indication: PRODUCT USED FOR UNKNOWN INDICATION
     Route: 048
     Dates: start: 20120410, end: 20120511
  4. OXAZEPAM [Concomitant]
     Route: 048
  5. ROCEPHIN [Suspect]
     Indication: LUNG INFILTRATION
     Route: 058
     Dates: start: 20120427
  6. AMLODIPINE [Concomitant]
     Route: 048
     Dates: end: 20120511
  7. EXELON [Suspect]
     Indication: DEMENTIA ALZHEIMER'S TYPE
     Route: 062
     Dates: start: 20120410, end: 20120511
  8. LEVOTHYROXINE SODIUM [Concomitant]
     Route: 048
     Dates: end: 20120511

REACTIONS (1)
  - ACUTE CORONARY SYNDROME [None]
